FAERS Safety Report 4639531-8 (Version None)
Quarter: 2005Q2

REPORT INFORMATION
  Report Type: 
  Country: None (occurrence: None)
  Receive Date: 20050419
  Receipt Date: 20050405
  Transmission Date: 20051028
  Serious: No
  Sender: FDA-Public Use
  Company Number: THYR-10220

PATIENT
  Age: 50 Year
  Sex: Female

DRUGS (1)
  1. THYROGEN [Suspect]
     Indication: DIAGNOSTIC PROCEDURE

REACTIONS (3)
  - DACRYOSTENOSIS ACQUIRED [None]
  - FALSE POSITIVE LABORATORY RESULT [None]
  - LACRIMATION INCREASED [None]
